FAERS Safety Report 5065087-4 (Version None)
Quarter: 2006Q3

REPORT INFORMATION
  Report Type: 
  Country: None (occurrence: None)
  Receive Date: 20060728
  Receipt Date: 20060713
  Transmission Date: 20061208
  Serious: Yes (Hospitalization)
  Sender: FDA-Public Use
  Company Number: ES-GILEAD-2006-0009869

PATIENT
  Age: 28 Year
  Sex: Female

DRUGS (4)
  1. TRUVADA [Suspect]
     Indication: HIV INFECTION
     Dates: start: 20060516, end: 20060615
  2. EFAVIRENZ [Concomitant]
     Indication: HIV INFECTION
     Dates: start: 20060516, end: 20060601
  3. ATAZANAVIR [Concomitant]
     Indication: HIV INFECTION
     Dates: start: 20060605, end: 20060615
  4. RITONAVIR [Concomitant]
     Indication: HIV INFECTION
     Dates: start: 20060605, end: 20060615

REACTIONS (7)
  - ANXIETY [None]
  - EYELID OEDEMA [None]
  - FACE OEDEMA [None]
  - OEDEMA MOUTH [None]
  - PRURITUS [None]
  - PYREXIA [None]
  - RASH [None]
